FAERS Safety Report 6302745-5 (Version None)
Quarter: 2009Q3

REPORT INFORMATION
  Report Type: 
  Country: None (occurrence: None)
  Receive Date: 20090810
  Receipt Date: 20090730
  Transmission Date: 20100115
  Serious: Yes (Other)
  Sender: FDA-Public Use
  Company Number: PHHY2009CA31928

PATIENT
  Sex: Female

DRUGS (5)
  1. ACLASTA [Suspect]
     Indication: OSTEOPOROSIS
     Dosage: UNK
     Route: 042
     Dates: start: 20090217
  2. CELEXA [Concomitant]
     Indication: DEPRESSION
     Dosage: 20
     Route: 048
     Dates: start: 20090201
  3. CRESTOR [Concomitant]
     Indication: BLOOD CHOLESTEROL INCREASED
     Dosage: 20
     Route: 048
     Dates: start: 20090528
  4. D-FORTE [Concomitant]
     Indication: OSTEOPOROSIS
     Dosage: 50 000
     Route: 048
  5. NEXIUM [Concomitant]
     Indication: REFLUX OESOPHAGITIS
     Dosage: 40
     Route: 048
     Dates: start: 20090217

REACTIONS (9)
  - ERYTHEMA [None]
  - FATIGUE [None]
  - MALAISE [None]
  - NAUSEA [None]
  - PYREXIA [None]
  - RASH MACULAR [None]
  - READING DISORDER [None]
  - RED BLOOD CELL SEDIMENTATION RATE INCREASED [None]
  - URTICARIA [None]
